FAERS Safety Report 5070119-3 (Version None)
Quarter: 2006Q3

REPORT INFORMATION
  Report Type: 
  Country: None (occurrence: None)
  Receive Date: 20060731
  Receipt Date: 20060720
  Transmission Date: 20061208
  Serious: Yes (Hospitalization)
  Sender: FDA-Public Use
  Company Number: 2006089797

PATIENT
  Age: 75 Year
  Sex: Female

DRUGS (4)
  1. CELECOXIB (CELECOXIB) [Suspect]
     Indication: ARTHRITIS
     Dosage: 200 MG (200 MG,  1 IN 1 D), ORAL
     Route: 048
  2. WARFARIN SODIUM [Suspect]
     Indication: ATRIAL FIBRILLATION
     Dosage: 3.5 MG, ORAL
     Route: 048
  3. FENTANYL [Concomitant]
  4. SOTALOL (SOTALOL) [Concomitant]

REACTIONS (6)
  - DYSPHAGIA [None]
  - DYSPHONIA [None]
  - EPIGLOTTIC OEDEMA [None]
  - HAEMATOMA [None]
  - PHARYNGOLARYNGEAL PAIN [None]
  - POST PROCEDURAL COMPLICATION [None]
